FAERS Safety Report 10569513 (Version 1)
Quarter: 2014Q4

REPORT INFORMATION
  Report Type: Report from Study
  Country: JP (occurrence: JP)
  Receive Date: 20141106
  Receipt Date: 20141106
  Transmission Date: 20150529
  Serious: Yes (Hospitalization, Disabling, Other)
  Sender: FDA-Public Use
  Company Number: JP-B.I. PHARMACEUTICALS,INC./RIDGEFIELD-2014-BI-53191GD

PATIENT
  Age: 75 Year
  Sex: Male
  Weight: 55.3 kg

DRUGS (4)
  1. BLOPRESS [Concomitant]
     Active Substance: CANDESARTAN CILEXETIL
     Indication: HYPERTENSION
     Dosage: 8 MG
     Route: 048
     Dates: end: 20110805
  2. PARIET [Concomitant]
     Active Substance: RABEPRAZOLE SODIUM
     Indication: GASTRITIS PROPHYLAXIS
     Dosage: 10 MG
     Route: 048
     Dates: start: 20110805, end: 20110805
  3. LASIX [Concomitant]
     Active Substance: FUROSEMIDE
     Indication: HYPERTENSION
     Dosage: 20 MG
     Route: 048
     Dates: end: 20110805
  4. PRADAXA [Suspect]
     Active Substance: DABIGATRAN ETEXILATE MESYLATE
     Indication: THROMBOSIS PROPHYLAXIS
     Dosage: 220 MG
     Route: 048
     Dates: start: 20110803, end: 20110805

REACTIONS (8)
  - Brain stem infarction [Recovered/Resolved with Sequelae]
  - Depressed level of consciousness [Unknown]
  - Ataxia [Unknown]
  - Dysphagia [Unknown]
  - Cheyne-Stokes respiration [Unknown]
  - Hemiplegia [Unknown]
  - Drug ineffective [Unknown]
  - Dyslalia [Unknown]

NARRATIVE: CASE EVENT DATE: 20110805
